FAERS Safety Report 9520357 (Version 2)
Quarter: 2014Q1

REPORT INFORMATION
  Report Type: Spontaneous
  Country: US (occurrence: US)
  Receive Date: 20130912
  Receipt Date: 20140131
  Transmission Date: 20141002
  Serious: Yes (Other)
  Sender: FDA-Public Use
  Company Number: US-ALLERGAN-1313470US

PATIENT
  Age: 51 Year
  Sex: Female

DRUGS (6)
  1. BOTOX [Suspect]
     Indication: PRODUCT USED FOR UNKNOWN INDICATION
     Dosage: 4 UNITS, SINGLE
     Route: 030
     Dates: start: 20091118, end: 20091118
  2. JUVEDERM ULTRA [Suspect]
     Indication: SKIN WRINKLING
     Dosage: UNK, SINGLE
     Dates: start: 20091118, end: 20091118
  3. JUVEDERM ULTRA [Suspect]
     Dosage: UNK
     Dates: start: 20090706, end: 20090706
  4. LAMICTAL [Concomitant]
     Indication: PRODUCT USED FOR UNKNOWN INDICATION
  5. EFFEXOR [Concomitant]
     Indication: PRODUCT USED FOR UNKNOWN INDICATION
  6. ADVIL                              /00044201/ [Concomitant]
     Indication: PRODUCT USED FOR UNKNOWN INDICATION

REACTIONS (11)
  - Renal failure [Unknown]
  - Influenza like illness [Unknown]
  - Fall [Unknown]
  - Acne [Recovered/Resolved]
  - Hypoaesthesia [Unknown]
  - Arthralgia [Unknown]
  - Paralysis [Unknown]
  - Rheumatoid arthritis [Unknown]
  - Raynaud^s phenomenon [Unknown]
  - Sjogren^s syndrome [Unknown]
  - Migraine [Unknown]
